FAERS Safety Report 7263148-2 (Version None)
Quarter: 2011Q1

REPORT INFORMATION
  Report Type: 
  Country: None (occurrence: None)
  Receive Date: 20110130
  Receipt Date: 20101216
  Transmission Date: 20110831
  Serious: No
  Sender: FDA-Public Use
  Company Number: US-ABBOTT-10P-163-0680322-00

PATIENT
  Sex: Male
  Weight: 69.462 kg

DRUGS (2)
  1. HUMIRA [Suspect]
     Indication: PSORIASIS
     Dosage: 2 INJECTIONS ONLY
     Dates: start: 20100901, end: 20101001
  2. CLOBETASOL [Concomitant]
     Indication: PRODUCT USED FOR UNKNOWN INDICATION

REACTIONS (3)
  - INJECTION SITE INDURATION [None]
  - INJECTION SITE REACTION [None]
  - DYSGEUSIA [None]
